FAERS Safety Report 8903677 (Version 1)
Quarter: 2012Q4

REPORT INFORMATION
  Report Type: Report from Study
  Country: FR (occurrence: FR)
  Receive Date: 20121113
  Receipt Date: 20121113
  Transmission Date: 20130627
  Serious: Yes (Hospitalization)
  Sender: FDA-Public Use
  Company Number: FR-BAXTER-2012BAX022494

PATIENT
  Age: 46 Year
  Sex: Female
  Weight: 67 kg

DRUGS (71)
  1. ENDOXAN 1G [Suspect]
     Indication: NODULAR (FOLLICULAR) LYMPHOMA
     Route: 042
     Dates: start: 20120426
  2. DOXORUBICIN [Suspect]
     Indication: NODULAR (FOLLICULAR) LYMPHOMA
     Route: 042
     Dates: start: 20120426
  3. VINCRISTINE [Suspect]
     Indication: NODULAR (FOLLICULAR) LYMPHOMA
     Route: 042
     Dates: start: 20120426
  4. VINCRISTINE [Suspect]
     Route: 042
     Dates: start: 20120518
  5. PREDNISONE [Suspect]
     Indication: NODULAR (FOLLICULAR) LYMPHOMA
     Route: 048
     Dates: start: 20120423, end: 20120425
  6. PREDNISONE [Suspect]
     Route: 048
     Dates: start: 20120430
  7. ONDANSETRON [Concomitant]
     Indication: PREMEDICATION
     Route: 065
     Dates: start: 20120426, end: 20120426
  8. ONDANSETRON [Concomitant]
     Route: 065
     Dates: start: 20120531, end: 20120531
  9. ONDANSETRON [Concomitant]
     Route: 065
     Dates: start: 20120712, end: 20120712
  10. ONDANSETRON [Concomitant]
     Route: 065
     Dates: start: 20120802, end: 20120802
  11. ONDANSETRON [Concomitant]
     Route: 065
     Dates: start: 20120823, end: 20120823
  12. ALLOPURINOL [Concomitant]
     Indication: HYPERURICEMIA
     Route: 065
     Dates: start: 20120425, end: 20120525
  13. ZOPHREN [Concomitant]
     Indication: NAUSEA
     Route: 065
     Dates: start: 20120427, end: 20120429
  14. ZOPHREN [Concomitant]
     Route: 065
     Dates: start: 20120601, end: 20120603
  15. ZOPHREN [Concomitant]
     Route: 065
     Dates: start: 20120622, end: 20120624
  16. ZOPHREN [Concomitant]
     Route: 065
     Dates: start: 20120713, end: 20120715
  17. ZOPHREN [Concomitant]
     Route: 065
     Dates: start: 20120803, end: 20120806
  18. ZOPHREN [Concomitant]
     Route: 065
     Dates: start: 20120824, end: 20120826
  19. KARDEGIC [Concomitant]
     Indication: ANEURYSM
     Route: 065
     Dates: start: 20040630
  20. LOVENOX [Concomitant]
     Indication: LIGAMENT SPRAIN
     Route: 065
     Dates: start: 20120511, end: 20120611
  21. LOVENOX [Concomitant]
     Route: 065
     Dates: start: 20121003, end: 20121029
  22. LORAMYL [Concomitant]
     Indication: CANDIDIASIS
     Route: 065
     Dates: start: 20120523, end: 20120530
  23. SOLU-MEDROL [Concomitant]
     Indication: PREMEDICATION
     Route: 065
     Dates: start: 20120524, end: 20120524
  24. CONTRAMAL [Concomitant]
     Indication: PREMEDICATION
     Route: 065
     Dates: start: 20120524, end: 20120524
  25. CONTRAMAL [Concomitant]
     Route: 065
     Dates: start: 20121006, end: 20121006
  26. POLARAMIN [Concomitant]
     Indication: DRUG USE FOR UNKNOWN INDICATION
     Route: 065
     Dates: start: 20120823, end: 20120823
  27. POLARAMIN [Concomitant]
     Route: 065
     Dates: start: 20121018, end: 20121018
  28. POLARAMIN [Concomitant]
     Route: 065
     Dates: start: 20120802, end: 20120802
  29. SIMETHICONE [Concomitant]
     Indication: EPIGASTRIC PAIN
     Route: 065
     Dates: start: 20120523, end: 20120615
  30. PARACETAMOL [Concomitant]
     Indication: PREMEDICATION
     Route: 065
     Dates: start: 20120426, end: 20120426
  31. PARACETAMOL [Concomitant]
     Indication: FEBRILE NEUTROPENIA
     Route: 065
     Dates: start: 20120506, end: 20120520
  32. PARACETAMOL [Concomitant]
     Indication: SMALL BOWEL OBSTRUCTION
     Route: 065
     Dates: start: 20120523, end: 20120602
  33. PARACETAMOL [Concomitant]
     Route: 065
     Dates: start: 20120621, end: 20120621
  34. PARACETAMOL [Concomitant]
     Route: 065
     Dates: start: 20120823, end: 20120823
  35. PARACETAMOL [Concomitant]
     Route: 065
     Dates: start: 20121018, end: 20121018
  36. PARACETAMOL [Concomitant]
     Route: 065
     Dates: start: 20121003, end: 20121009
  37. PARACETAMOL [Concomitant]
     Route: 065
     Dates: start: 20120531, end: 20120531
  38. PARACETAMOL [Concomitant]
     Route: 065
     Dates: start: 20120712, end: 20120712
  39. PARACETAMOL [Concomitant]
     Route: 065
     Dates: start: 20120802, end: 20120802
  40. SMECTA [Concomitant]
     Indication: DIARRHEA
     Route: 065
     Dates: start: 20121005, end: 20121007
  41. TOPALGIC [Concomitant]
     Indication: DRUG USE FOR UNKNOWN INDICATION
     Route: 065
     Dates: start: 20121002, end: 20121009
  42. INEXIUM [Concomitant]
     Indication: EPIGASTRIC PAIN
     Route: 065
     Dates: start: 20120929, end: 20121009
  43. INEXIUM [Concomitant]
     Indication: SMALL BOWEL OBSTRUCTION
     Route: 065
     Dates: start: 20120621, end: 20120621
  44. INEXIUM [Concomitant]
     Route: 065
     Dates: start: 20120523, end: 20120602
  45. PHLOROGLUCINOL [Concomitant]
     Indication: DRUG USE FOR UNKNOWN INDICATION
     Route: 065
     Dates: start: 20120929, end: 20121005
  46. GLUCIDION [Concomitant]
     Indication: DRUG USE FOR UNKNOWN INDICATION
     Route: 065
     Dates: start: 20121003, end: 20121009
  47. MORPHINE SULFATE [Concomitant]
     Indication: DRUG USE FOR UNKNOWN INDICATION
     Route: 065
     Dates: start: 20120927, end: 20120927
  48. PENTOTHAL [Concomitant]
     Indication: DRUG USE FOR UNKNOWN INDICATION
     Route: 065
     Dates: start: 20120927, end: 20120927
  49. DEXCHLORPHENIRAMINE MALEATE [Concomitant]
     Indication: DRUG USE FOR UNKNOWN INDICATION
     Route: 065
     Dates: start: 20120426, end: 20120426
  50. DEXCHLORPHENIRAMINE MALEATE [Concomitant]
     Route: 065
     Dates: start: 20120531, end: 20120531
  51. DEXCHLORPHENIRAMINE MALEATE [Concomitant]
     Route: 065
     Dates: start: 20120524, end: 20120524
  52. DEXCHLORPHENIRAMINE MALEATE [Concomitant]
     Route: 065
     Dates: start: 20120621, end: 20120621
  53. DEXCHLORPHENIRAMINE MALEATE [Concomitant]
     Route: 065
     Dates: start: 20120712, end: 20120712
  54. CORTICOSTEROID NOS [Concomitant]
     Indication: DRUG USE FOR UNKNOWN INDICATION
     Route: 065
     Dates: start: 20120426, end: 20120426
  55. AUGMENTIN [Concomitant]
     Indication: FEVER
     Route: 065
     Dates: start: 20120707, end: 20120711
  56. AUGMENTIN [Concomitant]
     Route: 065
     Dates: start: 20120722, end: 20120731
  57. AUGMENTIN [Concomitant]
     Route: 065
     Dates: start: 20120920, end: 20120924
  58. AUGMENTIN [Concomitant]
     Route: 065
     Dates: start: 20120506, end: 20120523
  59. TAVANIC [Concomitant]
     Indication: FEVER
     Route: 065
     Dates: start: 20120707, end: 20120711
  60. FLAGYL [Concomitant]
     Indication: ESCHERICHIA COLI INFECTION
     Route: 065
     Dates: start: 20120920, end: 20121009
  61. ACUPAN [Concomitant]
     Indication: ENTERITIS INFECTIOUS
     Route: 065
     Dates: start: 20120920, end: 20120929
  62. OXYNORM [Concomitant]
     Indication: ENTERITIS INFECTIOUS
     Route: 065
     Dates: start: 20120920, end: 20121009
  63. AXEPIM [Concomitant]
     Indication: ENTERITIS INFECTIOUS
     Route: 065
     Dates: start: 20120922, end: 20121007
  64. SEVORANE [Concomitant]
     Indication: DRUG USE FOR UNKNOWN INDICATION
     Route: 065
     Dates: start: 20120927, end: 20120927
  65. NIMBEX [Concomitant]
     Indication: DRUG USE FOR UNKNOWN INDICATION
     Route: 065
     Dates: start: 20120927, end: 20120927
  66. HYPNOVEL [Concomitant]
     Indication: DRUG USE FOR UNKNOWN INDICATION
     Route: 065
     Dates: start: 20120927, end: 20120927
  67. OFLOCET [Concomitant]
     Indication: ENTERITIS INFECTIOUS
     Route: 065
     Dates: start: 20120920, end: 20120922
  68. PRIMPERAN [Concomitant]
     Indication: ABSCESS INTESTINAL
     Route: 065
     Dates: start: 20120929, end: 20121009
  69. ERYTHROPOIETINE BETA [Concomitant]
     Indication: DRUG USE FOR UNKNOWN INDICATION
     Route: 065
  70. LEVOFLOXACIN [Concomitant]
     Indication: DRUG USE FOR UNKNOWN INDICATION
     Route: 065
  71. PREDNISONE [Concomitant]
     Indication: DRUG USE FOR UNKNOWN INDICATION
     Route: 065

REACTIONS (4)
  - Anaemia [Not Recovered/Not Resolved]
  - Febrile neutropenia [Recovered/Resolved]
  - Device related infection [Recovered/Resolved]
  - Small intestinal obstruction [Recovered/Resolved]
